FAERS Safety Report 6968030-3 (Version None)
Quarter: 2010Q3

REPORT INFORMATION
  Report Type: 
  Country: None (occurrence: None)
  Receive Date: 20100907
  Receipt Date: 20100825
  Transmission Date: 20110219
  Serious: Yes (Hospitalization)
  Sender: FDA-Public Use
  Company Number: A0879344A

PATIENT
  Age: 47 Year
  Sex: Female

DRUGS (1)
  1. AVANDIA [Suspect]
     Indication: PRODUCT USED FOR UNKNOWN INDICATION
     Route: 048
     Dates: end: 20070501

REACTIONS (2)
  - CARDIAC DISORDER [None]
  - CORONARY ARTERY BYPASS [None]
